FAERS Safety Report 4469426-4 (Version None)
Quarter: 2004Q4

REPORT INFORMATION
  Report Type: 
  Country: None (occurrence: None)
  Receive Date: 20041008
  Receipt Date: 20040809
  Transmission Date: 20050328
  Serious: Yes (Other)
  Sender: FDA-Public Use
  Company Number: US-BRISTOL-MYERS SQUIBB COMPANY-12665113

PATIENT
  Sex: Female

DRUGS (2)
  1. AVAPRO [Suspect]
     Route: 048
  2. ACE INHIBITOR [Suspect]

REACTIONS (1)
  - ANGIONEUROTIC OEDEMA [None]
